FAERS Safety Report 6962745-9 (Version None)
Quarter: 2010Q3

REPORT INFORMATION
  Report Type: 
  Country: None (occurrence: None)
  Receive Date: 20100902
  Receipt Date: 20100826
  Transmission Date: 20110219
  Serious: Yes (Other)
  Sender: FDA-Public Use
  Company Number: DK-BRISTOL-MYERS SQUIBB COMPANY-15252380

PATIENT
  Age: 52 Year
  Sex: Female

DRUGS (2)
  1. PACLITAXEL [Suspect]
     Indication: OVARIAN CANCER
     Dosage: 175 MG/M2;DOSE REDUCED TO 25% IN 7TH CYCLE;TAKEN 8 CYCLES;
     Route: 042
  2. CARBOPLATIN [Suspect]
     Indication: OVARIAN CANCER
     Dosage: AUC 5.
     Route: 042

REACTIONS (5)
  - HYPERSENSITIVITY [None]
  - OEDEMA [None]
  - PARAESTHESIA [None]
  - RAYNAUD'S PHENOMENON [None]
  - SCLERODERMA [None]
